FAERS Safety Report 7292959-2 (Version None)
Quarter: 2011Q1

REPORT INFORMATION
  Report Type: 
  Country: None (occurrence: None)
  Receive Date: 20110209
  Receipt Date: 20110209
  Transmission Date: 20110831
  Serious: Yes (Other)
  Sender: FDA-Public Use
  Company Number: None

PATIENT
  Age: 47 Year
  Sex: Female
  Weight: 101.6057 kg

DRUGS (1)
  1. CLONIDINE HCL [Suspect]
     Indication: BLOOD PRESSURE
     Dosage: 1 TABLET TWICE A DAY
     Dates: start: 20110201, end: 20110208

REACTIONS (3)
  - SKIN DISCOLOURATION [None]
  - HEADACHE [None]
  - FACIAL PAIN [None]
